FAERS Safety Report 21253938 (Version 2)
Quarter: 2022Q3

REPORT INFORMATION
  Report Type: Spontaneous
  Country: BR (occurrence: BR)
  Receive Date: 20220825
  Receipt Date: 20220831
  Transmission Date: 20221027
  Serious: Yes (Other)
  Sender: FDA-Public Use
  Company Number: BR-BoehringerIngelheim-2022-BI-187222

PATIENT
  Age: 61 Year
  Sex: Female
  Weight: 68 kg

DRUGS (6)
  1. JARDIANCE [Suspect]
     Active Substance: EMPAGLIFLOZIN
     Indication: Glucose tolerance impaired
     Route: 048
     Dates: start: 201907
  2. MICARDIS HCT [Suspect]
     Active Substance: HYDROCHLOROTHIAZIDE\TELMISARTAN
     Indication: Hypertension
     Dosage: 40/12.5 MG
     Route: 048
  3. FLANAX CAPS [Suspect]
     Active Substance: NAPROXEN
     Indication: Product used for unknown indication
  4. ESOMEPRAZOLE [Concomitant]
     Active Substance: ESOMEPRAZOLE
     Indication: Product used for unknown indication
  5. VITAMIN D [Concomitant]
     Active Substance: VITAMIN D NOS
     Indication: Product used for unknown indication
  6. CALCIUM [Concomitant]
     Active Substance: CALCIUM
     Indication: Product used for unknown indication

REACTIONS (3)
  - Myocardial infarction [Recovered/Resolved]
  - Product use in unapproved indication [Unknown]
  - Ulcer [Recovered/Resolved]

NARRATIVE: CASE EVENT DATE: 20190701
